FAERS Safety Report 4404711-3 (Version None)
Quarter: 2004Q3

REPORT INFORMATION
  Report Type: 
  Country: None (occurrence: None)
  Receive Date: 20040720
  Receipt Date: 20040714
  Transmission Date: 20050211
  Serious: Yes (Other)
  Sender: FDA-Public Use
  Company Number: C-04-0040

PATIENT
  Age: 74 Year
  Sex: Female
  Weight: 63.5036 kg

DRUGS (1)
  1. LACTULOSE [Suspect]
     Dosage: 1 TBS, 4 TIMES/DAY, ORALLY
     Route: 048
     Dates: start: 20040520, end: 20040527

REACTIONS (3)
  - AMMONIA INCREASED [None]
  - FEELING ABNORMAL [None]
  - LIVER DISORDER [None]
